FAERS Safety Report 23436846 (Version 1)
Quarter: 2024Q1

REPORT INFORMATION
  Report Type: Spontaneous
  Country: GB (occurrence: GB)
  Receive Date: 20240124
  Receipt Date: 20240124
  Transmission Date: 20240410
  Serious: Yes (Life-Threatening, Hospitalization, Other)
  Sender: FDA-Public Use
  Company Number: GB-CELLTRION INC.-2024GB001412

PATIENT

DRUGS (9)
  1. RITUXIMAB [Suspect]
     Active Substance: RITUXIMAB
     Indication: Seronegative arthritis
     Dosage: 1G INFUSION 1 WEEK APART IN JULY 2023
     Dates: start: 20230726
  2. METHOTREXATE [Suspect]
     Active Substance: METHOTREXATE
     Indication: Seronegative arthritis
     Dosage: 25MG WEEKLY
     Dates: end: 20231231
  3. ATORVASTATIN [Concomitant]
     Active Substance: ATORVASTATIN
     Indication: Hyperlipidaemia
     Dosage: ADDITIONAL INFO: ROUTE:
  4. CODEINE [Concomitant]
     Active Substance: CODEINE
     Indication: Pain
     Dosage: ADDITIONAL INFO: ROUTE:
  5. FOLIC ACID [Concomitant]
     Active Substance: FOLIC ACID
     Indication: Prophylaxis
     Dosage: ADDITIONAL INFO: ROUTE:
  6. IBUPROFEN [Concomitant]
     Active Substance: IBUPROFEN
     Dosage: ADDITIONAL INFO: ROUTE:
  7. LANSOPRAZOLE [Concomitant]
     Active Substance: LANSOPRAZOLE
     Indication: Adverse drug reaction
     Dosage: ADDITIONAL INFO: ROUTE:
  8. LANSOPRAZOLE [Concomitant]
     Active Substance: LANSOPRAZOLE
     Indication: Prophylaxis
  9. ACETAMINOPHEN [Concomitant]
     Active Substance: ACETAMINOPHEN
     Indication: Pain
     Dosage: ADDITIONAL INFO: ROUTE:

REACTIONS (3)
  - Pneumocystis jirovecii pneumonia [Recovering/Resolving]
  - Fall [Unknown]
  - Intentional product use issue [Unknown]

NARRATIVE: CASE EVENT DATE: 20240106
